FAERS Safety Report 5311474-6 (Version None)
Quarter: 2007Q2

REPORT INFORMATION
  Report Type: 
  Country: None (occurrence: None)
  Receive Date: 20070430
  Receipt Date: 20070420
  Transmission Date: 20071010
  Serious: Yes (Other)
  Sender: FDA-Public Use
  Company Number: CA-JNJFOC-20070403346

PATIENT
  Age: 17 Year
  Sex: Male

DRUGS (3)
  1. REMICADE [Suspect]
     Route: 042
  2. REMICADE [Suspect]
     Indication: CROHN'S DISEASE
     Dosage: 6 INFUSIONS ON UNSPECIFIED DATES.
     Route: 042
  3. AZATHIOPRINE [Concomitant]

REACTIONS (3)
  - DYSSTASIA [None]
  - HYPOAESTHESIA [None]
  - PARAESTHESIA [None]
